FAERS Safety Report 9014234 (Version 2)
Quarter: 2013Q1

REPORT INFORMATION
  Report Type: Report from Study
  Country: US (occurrence: US)
  Receive Date: 20130115
  Receipt Date: 20130128
  Transmission Date: 20140127
  Serious: Yes (Hospitalization)
  Sender: FDA-Public Use
  Company Number: US-ACTELION-A-NJ2013-77500

PATIENT
  Age: 61 Year
  Sex: Female

DRUGS (3)
  1. VELETRI [Suspect]
     Indication: PULMONARY ARTERIAL HYPERTENSION
     Dosage: 35 NG/KG, PER MIN
     Route: 041
     Dates: start: 201205
  2. SILDENAFIL [Concomitant]
  3. COUMADIN [Concomitant]

REACTIONS (1)
  - Influenza [Recovering/Resolving]
